FAERS Safety Report 7130378-X (Version None)
Quarter: 2010Q4

REPORT INFORMATION
  Report Type: 
  Country: None (occurrence: None)
  Receive Date: 20101101
  Receipt Date: 20100709
  Transmission Date: 20110411
  Serious: No
  Sender: FDA-Public Use
  Company Number: 2010-09152

PATIENT
  Age: 52 Year
  Sex: Male

DRUGS (1)
  1. RAPAFLO [Suspect]
     Indication: PROSTATOMEGALY
     Dosage: 1 CAPSULE, DAILY AFTER DINNER, ORAL
     Route: 048
     Dates: start: 20100702

REACTIONS (2)
  - CONSTIPATION [None]
  - DIZZINESS [None]
